FAERS Safety Report 15570240 (Version 2)
Quarter: 2018Q4

REPORT INFORMATION
  Report Type: Report from Study
  Country: DE (occurrence: DE)
  Receive Date: 20181031
  Receipt Date: 20181130
  Transmission Date: 20190205
  Serious: No
  Sender: FDA-Public Use
  Company Number: DE-ROCHE-2167967

PATIENT
  Age: 33 Year
  Sex: Female

DRUGS (2)
  1. CORTISONE [Suspect]
     Active Substance: CORTISONE\HYDROCORTISONE
     Indication: PROPHYLAXIS
     Route: 065
  2. OCREVUS [Suspect]
     Active Substance: OCRELIZUMAB
     Indication: RELAPSING-REMITTING MULTIPLE SCLEROSIS
     Dosage: SECOND DOSE RECEIVED ON 10/AUG/2018
     Route: 042
     Dates: start: 20180727

REACTIONS (12)
  - Rash [Recovered/Resolved]
  - Dysphonia [Recovering/Resolving]
  - Weight increased [Not Recovered/Not Resolved]
  - Tremor [Recovered/Resolved]
  - Inflammation [Recovered/Resolved]
  - Herpes pharyngitis [Not Recovered/Not Resolved]
  - Fatigue [Not Recovered/Not Resolved]
  - Dysphagia [Recovered/Resolved]
  - Alopecia [Not Recovered/Not Resolved]
  - Wisdom teeth removal [Recovered/Resolved]
  - Blood pressure increased [Recovered/Resolved]
  - Asthenia [Not Recovered/Not Resolved]

NARRATIVE: CASE EVENT DATE: 20180727
